FAERS Safety Report 10053439 (Version 2)
Quarter: 2014Q2

REPORT INFORMATION
  Report Type: Report from Study
  Country: US (occurrence: US)
  Receive Date: 20140402
  Receipt Date: 20140409
  Transmission Date: 20141212
  Serious: Yes (Other)
  Sender: FDA-Public Use
  Company Number: PHEH2014US006208

PATIENT
  Age: 48 Year
  Sex: Male
  Weight: 113.4 kg

DRUGS (5)
  1. GILENYA [Suspect]
     Indication: RELAPSING-REMITTING MULTIPLE SCLEROSIS
     Dosage: 0.5 MG, QD
     Route: 048
     Dates: start: 20120531
  2. METFORMIN [Concomitant]
     Indication: DIABETES MELLITUS
     Dosage: 500 MG, BID
     Route: 048
     Dates: start: 20131129
  3. BABY ASPIRIN [Concomitant]
     Indication: CARDIAC DISORDER
     Dosage: 81 MG, QD
     Route: 048
     Dates: start: 20131128
  4. ADVAIR [Concomitant]
     Indication: ASTHMA
     Dosage: UNK UKN, QHS,250/50 MCG
     Route: 055
  5. SINGULAIR [Concomitant]
     Indication: ASTHMA
     Dosage: 10 MG, QD
     Route: 048

REACTIONS (8)
  - Cellulitis [Unknown]
  - Swelling face [Unknown]
  - Tenderness [Unknown]
  - Tooth abscess [Unknown]
  - Dental necrosis [Unknown]
  - Oropharyngeal pain [Unknown]
  - Toothache [Unknown]
  - Cognitive disorder [Not Recovered/Not Resolved]
